FAERS Safety Report 8852616 (Version 1)
Quarter: 2012Q4

REPORT INFORMATION
  Report Type: 
  Country: PL (occurrence: PL)
  Receive Date: 20121022
  Receipt Date: 20121022
  Transmission Date: 20130627
  Serious: Yes (Other)
  Sender: FDA-Public Use
  Company Number: PHHY2012PL086117

PATIENT
  Age: 78 Year
  Sex: Female

DRUGS (7)
  1. CARBAMAZEPINE [Suspect]
     Indication: NEURALGIA
     Dosage: 300 mg,daily
  2. CARBAMAZEPINE [Suspect]
     Dosage: 600 mg, daily
  3. CARBAMAZEPINE [Suspect]
     Dosage: 300 mg/day
  4. GABAPENTIN [Concomitant]
     Indication: NEURALGIA
     Dosage: 300 mg, daily
  5. GABAPENTIN [Concomitant]
     Dosage: 600 mg, daily
  6. MIANSERIN [Concomitant]
     Indication: NEURALGIA
     Dosage: 5 mg, daily
  7. BUPRENORPHINE [Concomitant]
     Dosage: 0.2 mg, BID

REACTIONS (5)
  - Memory impairment [Unknown]
  - Dependent personality disorder [Unknown]
  - Somnolence [Unknown]
  - Dizziness [Unknown]
  - Neuralgia [Unknown]
